FAERS Safety Report 5047066-6 (Version None)
Quarter: 2006Q3

REPORT INFORMATION
  Report Type: 
  Country: None (occurrence: None)
  Receive Date: 20060703
  Receipt Date: 20060619
  Transmission Date: 20061208
  Serious: Yes (Hospitalization, Other)
  Sender: FDA-Public Use
  Company Number: 2006077765

PATIENT
  Sex: Male

DRUGS (1)
  1. GEODON [Suspect]
     Dosage: SEE IMAGE

REACTIONS (2)
  - ANAPHYLACTIC SHOCK [None]
  - SWOLLEN TONGUE [None]
